FAERS Safety Report 9530932 (Version 1)
Quarter: 2013Q1

REPORT INFORMATION
  Report Type: Spontaneous
  Country: US (occurrence: None)
  Receive Date: 20130329
  Receipt Date: 20130329
  Transmission Date: 20140127
  Serious: No
  Sender: FDA-Public Use
  Company Number: 1000041199

PATIENT
  Age: 77 Year
  Sex: Female

DRUGS (1)
  1. LINZESS ( LINACLOTIDE) ( 145 MICROGRAM, CAPSULES) [Suspect]
     Indication: CONSTIPATION
     Dosage: 145 MCG ( 145 MCG, 1 IN 1 D), ORAL
     Route: 048
     Dates: start: 20121219

REACTIONS (1)
  - Drug ineffective [None]
